FAERS Safety Report 11702195 (Version 1)
Quarter: 2015Q4

REPORT INFORMATION
  Report Type: Spontaneous
  Country: US (occurrence: US)
  Receive Date: 20151105
  Receipt Date: 20151105
  Transmission Date: 20160304
  Serious: No
  Sender: FDA-Public Use
  Company Number: US-ASTRAZENECA-2015SF04441

PATIENT
  Age: 85 Year
  Sex: Female
  Weight: 59.9 kg

DRUGS (3)
  1. TUDORZA PRESSAIR [Suspect]
     Active Substance: ACLIDINIUM BROMIDE
     Indication: PROPHYLAXIS
     Route: 055
     Dates: start: 2015
  2. SYMBICORT [Suspect]
     Active Substance: BUDESONIDE\FORMOTEROL FUMARATE DIHYDRATE
     Dosage: 80 4.5 MCG, TWO TIMES A DAY
     Route: 055
     Dates: start: 2015
  3. OXYGEN. [Concomitant]
     Active Substance: OXYGEN

REACTIONS (8)
  - Cough [Unknown]
  - Intentional product misuse [Unknown]
  - Body height decreased [Unknown]
  - Product quality issue [Unknown]
  - Drug dose omission [Unknown]
  - Bronchitis [Unknown]
  - Weight decreased [Unknown]
  - Drug ineffective [Unknown]

NARRATIVE: CASE EVENT DATE: 2015
